FAERS Safety Report 4959064-9 (Version None)
Quarter: 2006Q1

REPORT INFORMATION
  Report Type: 
  Country: None (occurrence: None)
  Receive Date: 20060328
  Receipt Date: 20060310
  Transmission Date: 20060701
  Serious: Yes (Disabling, Other)
  Sender: FDA-Public Use
  Company Number: DSA_27819_2006

PATIENT
  Age: 31 Year
  Sex: Male
  Weight: 108 kg

DRUGS (5)
  1. ATIVAN [Suspect]
     Dosage: 1 MG PRN PO
     Route: 048
     Dates: start: 20060201
  2. PROZAC [Suspect]
     Dosage: 10 MG Q DAY PO
     Route: 048
     Dates: start: 20060201
  3. KEPPRA [Suspect]
     Indication: AGGRESSION
     Dosage: 500 MG BID PO
     Route: 048
     Dates: start: 20060201
  4. KEPPRA [Suspect]
     Indication: AGGRESSION
     Dosage: 250 MG ONCE PO
     Route: 048
     Dates: start: 20060201, end: 20060201
  5. ADVIL /00109201/ [Concomitant]

REACTIONS (4)
  - CONDITION AGGRAVATED [None]
  - DEPRESSION [None]
  - ROAD TRAFFIC ACCIDENT [None]
  - SUICIDAL IDEATION [None]
